FAERS Safety Report 14704592 (Version 5)
Quarter: 2018Q2

REPORT INFORMATION
  Report Type: Spontaneous
  Country: SK (occurrence: SK)
  Receive Date: 20180402
  Receipt Date: 20180619
  Transmission Date: 20180711
  Serious: Yes (Life-Threatening, Other)
  Sender: FDA-Public Use
  Company Number: SK-PFIZER INC-2018129320

PATIENT
  Age: 65 Year
  Sex: Female

DRUGS (3)
  1. CYTARABINE. [Suspect]
     Active Substance: CYTARABINE
     Indication: ACUTE MYELOID LEUKAEMIA
     Dosage: INDUCTION THERAPY WITH DAUNORUBICIN (3+7) REGIMEN IN REDUCTION
  2. DAUNORUBICIN HCL [Suspect]
     Active Substance: DAUNORUBICIN HYDROCHLORIDE
     Indication: ACUTE MYELOID LEUKAEMIA
     Dosage: INDUCTION THERAPY WITH ARA-C (3+7) IN REDUCTION
  3. MITOXANTRONE [Suspect]
     Active Substance: MITOXANTRONE HYDROCHLORIDE
     Indication: ACUTE MYELOID LEUKAEMIA

REACTIONS (8)
  - Streptococcal bacteraemia [Unknown]
  - Cholecystitis [Unknown]
  - Enterocolitis [Unknown]
  - Liver disorder [Unknown]
  - Bacterial sepsis [Unknown]
  - Jaundice [Unknown]
  - Escherichia bacteraemia [Unknown]
  - Pancytopenia [Unknown]
